FAERS Safety Report 5760317-5 (Version None)
Quarter: 2008Q2

REPORT INFORMATION
  Report Type: 
  Country: None (occurrence: None)
  Receive Date: 20080605
  Receipt Date: 20080527
  Transmission Date: 20081010
  Serious: Yes (Hospitalization, Other)
  Sender: FDA-Public Use
  Company Number: US-PFIZER INC-2006090694

PATIENT
  Sex: Female
  Weight: 88.5 kg

DRUGS (5)
  1. CELEBREX [Suspect]
     Indication: PAIN
     Dates: start: 19990828
  2. BEXTRA [Suspect]
     Indication: PAIN
  3. IBUROFEN [Concomitant]
     Indication: ARTHRITIS
  4. DIOVAN [Concomitant]
  5. LABETALOL HCL [Concomitant]

REACTIONS (7)
  - ANXIETY [None]
  - CARDIAC FAILURE CONGESTIVE [None]
  - FEAR [None]
  - HEART RATE IRREGULAR [None]
  - INJURY [None]
  - PERIPHERAL VASCULAR DISORDER [None]
  - RASH [None]
